FAERS Safety Report 7906120 (Version 3)
Quarter: 2014Q1

REPORT INFORMATION
  Report Type: Spontaneous
  Country: TN (occurrence: TN)
  Receive Date: 20110420
  Receipt Date: 20140205
  Transmission Date: 20141002
  Serious: Yes (Life-Threatening, Hospitalization)
  Sender: FDA-Public Use
  Company Number: TN-ASTRAZENECA-2011SE20605

PATIENT
  Age: 30 Year
  Sex: Male

DRUGS (8)
  1. HYPERBARIC BUPIVACAINE [Suspect]
     Indication: SPINAL ANAESTHESIA
     Route: 037
  2. TRANEXAMIC ACID [Suspect]
     Indication: SPINAL ANAESTHESIA
     Route: 037
  3. MIDAZOLAM [Concomitant]
     Indication: SEDATION
     Route: 042
  4. FENTANYL [Concomitant]
     Indication: SEDATION
     Route: 042
  5. FENTANYL [Concomitant]
     Indication: SEDATION
     Dosage: 2 UG/KG/45 MIN FOR MAINTENANCE
     Route: 042
  6. PROPOFOL [Concomitant]
     Indication: GENERAL ANAESTHESIA
     Route: 042
  7. PROPOFOL [Concomitant]
     Indication: GENERAL ANAESTHESIA
     Dosage: 100 MG/KG/H FOR MAINTENANCE
     Route: 042
  8. CELOCURINE [Concomitant]
     Indication: GENERAL ANAESTHESIA
     Route: 042

REACTIONS (5)
  - Convulsion [Recovered/Resolved]
  - Ventricular arrhythmia [Recovered/Resolved]
  - Myoclonus [Recovered/Resolved]
  - Hypertension [Recovered/Resolved]
  - Wrong drug administered [Recovered/Resolved]
